FAERS Safety Report 7906430-5 (Version None)
Quarter: 2011Q4

REPORT INFORMATION
  Report Type: 
  Country: None (occurrence: None)
  Receive Date: 20111110
  Receipt Date: 20111108
  Transmission Date: 20120403
  Serious: Yes (Hospitalization)
  Sender: FDA-Public Use
  Company Number: ES-SHIRE-SPV1-2011-01379

PATIENT
  Age: 50 Year
  Sex: Male

DRUGS (8)
  1. FOSRENOL [Suspect]
     Indication: HYPERPHOSPHATAEMIA
     Dosage: 1000 MG, 3X/DAY:TID
     Route: 048
  2. OLMESARTAN MEDOXOMIL [Interacting]
     Indication: HYPERTENSION
     Dosage: 1 DF, 2X/DAY:BID
     Route: 048
  3. INTELENCE [Interacting]
     Indication: HIV INFECTION
     Dosage: 400 MG, 1X/DAY:QD
     Route: 048
  4. REYATAZ [Interacting]
     Indication: HIV INFECTION
     Dosage: 400 MG, 1X/DAY:QD
     Route: 048
     Dates: start: 20100101
  5. VIDEX [Interacting]
     Indication: HIV INFECTION
     Dosage: 100 MG, 1X/DAY:QD
     Route: 048
     Dates: start: 20110525, end: 20110715
  6. VIDEX [Interacting]
     Dosage: 100 MG, 1X/DAY:QD
     Route: 048
     Dates: start: 20100421, end: 20110101
  7. FUROSEMIDE [Interacting]
     Indication: HYPERTENSION
     Dosage: 40 MG, 1X/DAY:QD
     Route: 048
  8. RENVELA [Interacting]
     Indication: HYPERPHOSPHATAEMIA
     Dosage: 2.4 G, 2X/DAY:BID
     Route: 048

REACTIONS (2)
  - DRUG INTERACTION [None]
  - PANCREATITIS ACUTE [None]
